FAERS Safety Report 9783456 (Version 1)
Quarter: 2013Q4

REPORT INFORMATION
  Report Type: Spontaneous
  Country: CL (occurrence: CL)
  Receive Date: 20131226
  Receipt Date: 20131226
  Transmission Date: 20140711
  Serious: Yes (Other)
  Sender: FDA-Public Use
  Company Number: CL-PFIZER INC-2013365873

PATIENT
  Age: 96 Year
  Sex: Female

DRUGS (5)
  1. XALATAN [Suspect]
     Indication: GLAUCOMA
     Dosage: 1 DF, 1X/DAY
     Dates: start: 2008
  2. GLAUSOLETS [Concomitant]
     Dosage: 1 DF, 2X/DAY
     Dates: start: 2008
  3. ASPIRINA [Concomitant]
     Dosage: UNK
     Dates: start: 1993
  4. LOSARTAN [Concomitant]
     Indication: HYPERTENSION
     Dosage: UNK
     Dates: start: 1993
  5. FUROSEMIDE [Concomitant]
     Indication: HYPERTENSION
     Dosage: UNK
     Dates: start: 1993

REACTIONS (4)
  - Senile dementia [Not Recovered/Not Resolved]
  - Physical disability [Not Recovered/Not Resolved]
  - Hearing impaired [Not Recovered/Not Resolved]
  - Headache [Not Recovered/Not Resolved]
